FAERS Safety Report 11470414 (Version 2)
Quarter: 2015Q3

REPORT INFORMATION
  Report Type: Spontaneous
  Country: US (occurrence: US)
  Receive Date: 20150903
  Receipt Date: 20150903
  Transmission Date: 20151125
  Serious: Yes (Other)
  Sender: FDA-Public Use
  Company Number: US-ELI_LILLY_AND_COMPANY-US201112000821

PATIENT
  Age: 44 Year
  Sex: Female

DRUGS (3)
  1. CYMBALTA [Suspect]
     Active Substance: DULOXETINE HYDROCHLORIDE
     Dosage: 30 MG, QD
     Dates: start: 20111121, end: 20111128
  2. MORPHINE [Concomitant]
     Active Substance: MORPHINE
  3. MILNACIPRAN [Concomitant]
     Active Substance: MILNACIPRAN

REACTIONS (1)
  - Suicidal ideation [Recovered/Resolved]
